FAERS Safety Report 11821437 (Version 2)
Quarter: 2015Q4

REPORT INFORMATION
  Report Type: Spontaneous
  Country: US (occurrence: US)
  Receive Date: 20151210
  Receipt Date: 20151214
  Transmission Date: 20160305
  Serious: No
  Sender: FDA-Public Use
  Company Number: US-PFIZER INC-2015416827

PATIENT
  Age: 47 Year
  Sex: Female
  Weight: 71.21 kg

DRUGS (4)
  1. LYRICA [Suspect]
     Active Substance: PREGABALIN
     Dosage: 75 MG, 3X/DAY
     Route: 048
     Dates: start: 201510
  2. LYRICA [Suspect]
     Active Substance: PREGABALIN
     Dosage: TAKE ONE 75MG CAPSULE TWICE A DAY, ONE IN THE MORNING AND ONE BEFORE SHE WENT TO SLEEP
     Route: 048
  3. LYRICA [Suspect]
     Active Substance: PREGABALIN
     Dosage: TOOK ONE CAPSULE BY MOUTH DAILY FOR THE PAST THREE DAYS
     Route: 048
     Dates: start: 20151124, end: 20151126
  4. LYRICA [Suspect]
     Active Substance: PREGABALIN
     Indication: FIBROMYALGIA
     Dosage: 50 MG, UNK
     Route: 048
     Dates: start: 201509

REACTIONS (4)
  - Drug effect incomplete [Not Recovered/Not Resolved]
  - Pain [Unknown]
  - Drug ineffective [Not Recovered/Not Resolved]
  - Crying [Unknown]

NARRATIVE: CASE EVENT DATE: 201509
